FAERS Safety Report 25402467 (Version 1)
Quarter: 2025Q2

REPORT INFORMATION
  Report Type: Spontaneous
  Country: HU (occurrence: HU)
  Receive Date: 20250605
  Receipt Date: 20250605
  Transmission Date: 20250717
  Serious: Yes (Other)
  Sender: PFIZER
  Company Number: HU-ROCHE-10000296336

PATIENT
  Age: 40 Year
  Sex: Female

DRUGS (1)
  1. RITUXIMAB [Suspect]
     Active Substance: RITUXIMAB

REACTIONS (1)
  - Cytokine release syndrome [Unknown]
